FAERS Safety Report 16680234 (Version 1)
Quarter: 2019Q3

REPORT INFORMATION
  Report Type: Spontaneous
  Country: US (occurrence: US)
  Receive Date: 20190807
  Receipt Date: 20190807
  Transmission Date: 20191004
  Serious: Yes (Hospitalization, Other)
  Sender: FDA-Public Use
  Company Number: US-ELI_LILLY_AND_COMPANY-US201903007682

PATIENT
  Sex: Female
  Weight: 67 kg

DRUGS (12)
  1. BENTYL [Concomitant]
     Active Substance: DICYCLOMINE HYDROCHLORIDE
     Indication: PRODUCT USED FOR UNKNOWN INDICATION
     Dosage: 20 MG, OTHER 1-3X5 DAY AS NEEDED
  2. GABAPENTIN. [Suspect]
     Active Substance: GABAPENTIN
     Indication: NEUROPATHY PERIPHERAL
  3. SODIUM CHLORIDE. [Concomitant]
     Active Substance: SODIUM CHLORIDE
     Indication: POSTURAL ORTHOSTATIC TACHYCARDIA SYNDROME
     Dosage: 1000 ML, 2/M
     Dates: start: 2017
  4. KLONOPIN [Concomitant]
     Active Substance: CLONAZEPAM
     Indication: PRODUCT USED FOR UNKNOWN INDICATION
     Dosage: 0.25 MG, PRN
     Dates: start: 2017
  5. TYLENOL A [Concomitant]
     Active Substance: ACETAMINOPHEN
     Indication: PRODUCT USED FOR UNKNOWN INDICATION
     Dosage: 500 MG, EVERY 6 HRS
     Dates: start: 2017
  6. GABAPENTIN. [Suspect]
     Active Substance: GABAPENTIN
     Indication: GASTROINTESTINAL PAIN
     Dosage: 100 MG, TID
     Route: 065
     Dates: start: 20170927
  7. GABAPENTIN. [Suspect]
     Active Substance: GABAPENTIN
     Indication: PAIN IN EXTREMITY
  8. GABAPENTIN. [Suspect]
     Active Substance: GABAPENTIN
     Indication: PAIN
  9. KLONOPIN [Concomitant]
     Active Substance: CLONAZEPAM
     Dosage: .5 MG, EACH EVENING
  10. CYMBALTA [Suspect]
     Active Substance: DULOXETINE HYDROCHLORIDE
     Indication: PAIN
     Dosage: 30 MG, DAILY
     Route: 065
     Dates: start: 2017, end: 2018
  11. GABAPENTIN. [Suspect]
     Active Substance: GABAPENTIN
     Indication: MIGRAINE
  12. MOBIC [Concomitant]
     Active Substance: MELOXICAM
     Indication: PRODUCT USED FOR UNKNOWN INDICATION
     Dosage: 7.5 MG

REACTIONS (3)
  - Drug ineffective [Unknown]
  - Rectal haemorrhage [Unknown]
  - Suicidal ideation [Recovered/Resolved]
